FAERS Safety Report 5200777-1 (Version None)
Quarter: 2006Q4

REPORT INFORMATION
  Report Type: 
  Country: None (occurrence: None)
  Receive Date: 20061016
  Receipt Date: 20060624
  Transmission Date: 20070319
  Serious: No
  Sender: FDA-Public Use
  Company Number: 2006SP002530

PATIENT
  Age: 56 Year
  Sex: Male
  Weight: 142.8831 kg

DRUGS (4)
  1. LUNESTA [Suspect]
     Indication: INSOMNIA
     Dosage: 3 MG, ORAL
     Route: 048
     Dates: start: 20060601, end: 20060101
  2. CELEBREX [Concomitant]
  3. PREVACID [Concomitant]
  4. ATENOLOL [Concomitant]

REACTIONS (1)
  - DYSGEUSIA [None]
